FAERS Safety Report 7949776-7 (Version None)
Quarter: 2011Q4

REPORT INFORMATION
  Report Type: 
  Country: None (occurrence: None)
  Receive Date: 20111130
  Receipt Date: 20111125
  Transmission Date: 20120403
  Serious: Yes (Death, Life-Threatening, Hospitalization, Disabling, Other)
  Sender: FDA-Public Use
  Company Number: PHHY2011JP101027

PATIENT
  Age: 41 Year
  Sex: Female

DRUGS (4)
  1. TAMOXIFEN CITRATE [Concomitant]
  2. PAMIDRONATE DISODIUM [Suspect]
     Indication: METASTASIS
     Dosage: 90 MG
     Dates: start: 20040227, end: 20090708
  3. PAMIDRONATE DISODIUM [Suspect]
     Dosage: 90 MG
     Dates: start: 20100216, end: 20110118
  4. TAXOTERE [Concomitant]

REACTIONS (30)
  - APHASIA [None]
  - IMPAIRED HEALING [None]
  - PARESIS [None]
  - PERIODONTAL INFECTION [None]
  - GINGIVAL PAIN [None]
  - TOOTHACHE [None]
  - VISION BLURRED [None]
  - GINGIVAL SWELLING [None]
  - MUSCULOSKELETAL STIFFNESS [None]
  - APHAGIA [None]
  - DENTAL FISTULA [None]
  - MENINGITIS [None]
  - HEADACHE [None]
  - OSTEONECROSIS OF JAW [None]
  - PARALYSIS [None]
  - SENSORY DISTURBANCE [None]
  - GAIT DISTURBANCE [None]
  - GINGIVAL ERYTHEMA [None]
  - PYREXIA [None]
  - COORDINATION ABNORMAL [None]
  - DYSPHAGIA [None]
  - CONFUSIONAL STATE [None]
  - MOUTH ULCERATION [None]
  - GINGIVAL INFECTION [None]
  - CEREBRAL INFARCTION [None]
  - MOVEMENT DISORDER [None]
  - INTRACRANIAL PRESSURE INCREASED [None]
  - DENTAL CARIES [None]
  - STOMATITIS [None]
  - SINUSITIS [None]
